FAERS Safety Report 8798695 (Version 1)
Quarter: 2012Q4

REPORT INFORMATION
  Report Type: 
  Country: NL (occurrence: NL)
  Receive Date: 20120920
  Receipt Date: 20120920
  Transmission Date: 20130627
  Serious: Yes (Other)
  Sender: FDA-Public Use
  Company Number: NL-ELI_LILLY_AND_COMPANY-NL201209003148

PATIENT
  Sex: Female
  Weight: 50 kg

DRUGS (1)
  1. FORSTEO [Suspect]
     Dosage: 20 UNK, UNK
     Route: 058
     Dates: start: 20111028

REACTIONS (6)
  - Jaw fracture [Recovered/Resolved]
  - Fall [Unknown]
  - Rib fracture [Unknown]
  - Rash macular [Not Recovered/Not Resolved]
  - Urinary incontinence [Unknown]
  - Fracture [Unknown]
